FAERS Safety Report 26038044 (Version 1)
Quarter: 2025Q4

REPORT INFORMATION
  Report Type: Spontaneous
  Country: GB (occurrence: GB)
  Receive Date: 20251112
  Receipt Date: 20251112
  Transmission Date: 20260117
  Serious: Yes (Other)
  Sender: BOEHRINGER INGELHEIM
  Company Number: GB-BoehringerIngelheim-2025-BI-105979

PATIENT
  Sex: Female
  Weight: 75.50 kg

DRUGS (8)
  1. NINTEDANIB [Suspect]
     Active Substance: NINTEDANIB
     Indication: Idiopathic pulmonary fibrosis
     Dosage: DAILY DOSE: 100 MILLIGRAM(S)
  2. NICOTINAMIDE RIBOSIDE [Concomitant]
     Active Substance: NICOTINAMIDE RIBOSIDE
     Indication: Product used for unknown indication
     Dosage: 2 PILLS
  3. Reservatrol [Concomitant]
     Indication: Product used for unknown indication
     Dosage: 2 PILLS
  4. ZINC PICOLINATE [Concomitant]
     Active Substance: ZINC PICOLINATE
     Indication: Product used for unknown indication
     Dosage: 1 PILL
  5. VITAMIN D NOS [Concomitant]
     Active Substance: CHOLECALCIFEROL\ERGOCALCIFEROL
     Indication: Product used for unknown indication
     Dosage: 1 PILL DAILY
  6. ONDANSETRON [Concomitant]
     Active Substance: ONDANSETRON
     Indication: Nausea
     Dosage: 1 PILL_DOSE (8MG TABLET)_APPROXIMATELY EVERY?THIRD DAY (TO CALM THE NINTEDANIB SIDE EFFECTS)
  7. PROBIOTICS NOS [Concomitant]
     Active Substance: PROBIOTICS NOS
     Indication: Product used for unknown indication
     Dosage: 1 PILL DAILY
  8. DOXYCYCLINE [Concomitant]
     Active Substance: DOXYCYCLINE
     Indication: Product used for unknown indication

REACTIONS (1)
  - Idiopathic pulmonary fibrosis [Unknown]
